FAERS Safety Report 4529401-8 (Version None)
Quarter: 2004Q4

REPORT INFORMATION
  Report Type: 
  Country: None (occurrence: None)
  Receive Date: 20041216
  Receipt Date: 20041210
  Transmission Date: 20050328
  Serious: Yes (Hospitalization)
  Sender: FDA-Public Use
  Company Number: 2004105200

PATIENT
  Age: 73 Year
  Sex: Female
  Weight: 64 kg

DRUGS (3)
  1. DIMENHYDRINATE (DIMENHYDRINATE) [Suspect]
     Indication: DIZZINESS
     Dosage: 50 MG TWICE DAILY, ORAL
     Route: 048
     Dates: start: 20041127, end: 20041203
  2. ENALAPRIL (ENALAPRIL) [Concomitant]
  3. ATENOLOL [Concomitant]

REACTIONS (2)
  - HALLUCINATION, VISUAL [None]
  - HYPERTENSION [None]
